FAERS Safety Report 7385206-4 (Version None)
Quarter: 2011Q1

REPORT INFORMATION
  Report Type: 
  Country: None (occurrence: None)
  Receive Date: 20110330
  Receipt Date: 20110112
  Transmission Date: 20110831
  Serious: No
  Sender: FDA-Public Use
  Company Number: US-MYLANLABS-2011S1001017

PATIENT
  Age: 81 Year
  Sex: Female
  Weight: 77.11 kg

DRUGS (2)
  1. HUMULIN /00646001/ [Concomitant]
     Indication: DIABETES MELLITUS
     Dates: start: 19860101
  2. NIFEDIPINE [Suspect]
     Indication: BLOOD PRESSURE INCREASED
     Route: 048
     Dates: start: 20110107

REACTIONS (2)
  - CONSTIPATION [None]
  - MUSCLE SPASMS [None]
